FAERS Safety Report 25622305 (Version 2)
Quarter: 2025Q3

REPORT INFORMATION
  Report Type: Spontaneous
  Country: RU (occurrence: RU)
  Receive Date: 20250730
  Receipt Date: 20250814
  Transmission Date: 20251021
  Serious: Yes (Death)
  Sender: SANDOZ
  Company Number: RU-002147023-NVSC2024RU146433

PATIENT
  Age: 67 Year
  Sex: Female
  Weight: 83 kg

DRUGS (3)
  1. FULVESTRANT [Suspect]
     Active Substance: FULVESTRANT
     Indication: Product used for unknown indication
     Route: 065
  2. KISQALI [Suspect]
     Active Substance: RIBOCICLIB SUCCINATE
     Indication: Breast cancer stage III
     Route: 048
     Dates: start: 20240418, end: 20250415
  3. KISQALI [Suspect]
     Active Substance: RIBOCICLIB SUCCINATE
     Route: 048
     Dates: start: 20250415

REACTIONS (3)
  - Breast cancer stage III [Fatal]
  - Malignant neoplasm progression [Fatal]
  - Purpura [Recovered/Resolved]

NARRATIVE: CASE EVENT DATE: 20240428
